FAERS Safety Report 15481663 (Version 1)
Quarter: 2018Q4

REPORT INFORMATION
  Report Type: Spontaneous
  Country: JP (occurrence: JP)
  Receive Date: 20181010
  Receipt Date: 20181010
  Transmission Date: 20190205
  Serious: Yes (Life-Threatening, Hospitalization)
  Sender: FDA-Public Use
  Company Number: JP-TEVA-201805_00001761

PATIENT
  Age: 82 Year
  Sex: Female
  Weight: 37 kg

DRUGS (12)
  1. WARFARIN [Concomitant]
     Active Substance: WARFARIN
     Dosage: 1.5 MILLIGRAM DAILY;
     Route: 065
  2. FUROSEMIDE. [Concomitant]
     Active Substance: FUROSEMIDE
     Dosage: 60 MILLIGRAM DAILY;
     Route: 065
  3. BAYASPIRIN [Concomitant]
     Active Substance: ASPIRIN
     Dosage: 100 MILLIGRAM DAILY;
     Route: 065
  4. BONOTEO [Concomitant]
     Active Substance: MINODRONIC ACID
     Dosage: 1.6667 MILLIGRAM DAILY;
     Route: 065
  5. TANADOPA [Concomitant]
     Active Substance: DOCARPAMINE
     Dosage: 1 GRAM DAILY;
     Route: 065
  6. ALLOPURINOL. [Concomitant]
     Active Substance: ALLOPURINOL
     Dosage: 100 MILLIGRAM DAILY;
     Route: 065
  7. SARPOGRELATE HYDROCHLORIDE [Concomitant]
     Active Substance: SARPOGRELATE HYDROCHLORIDE
     Dosage: 200 MILLIGRAM DAILY;
     Route: 065
  8. HALFDIGOXIN [Suspect]
     Active Substance: DIGOXIN
     Indication: SUPRAVENTRICULAR TACHYCARDIA
     Dosage: .125 MILLIGRAM DAILY;
     Route: 048
     Dates: end: 20180227
  9. SODIUM FERROUS CITRATE [Concomitant]
     Active Substance: SODIUM FERROUS CITRATE
     Dosage: 50 MILLIGRAM DAILY;
     Route: 065
  10. LENIMEC [Suspect]
     Active Substance: ENALAPRIL
     Indication: HYPERTENSION
     Dosage: 2.5 MILLIGRAM DAILY;
     Route: 048
     Dates: end: 20180227
  11. SPIRONOLACTONE TABLET 25MG TEVA [Suspect]
     Active Substance: SPIRONOLACTONE
     Indication: OEDEMA DUE TO CARDIAC DISEASE
     Dosage: 25 MILLIGRAM DAILY;
     Route: 048
     Dates: start: 20171010, end: 20180227
  12. LANSOPRAZOLE. [Concomitant]
     Active Substance: LANSOPRAZOLE
     Dosage: 15 MILLIGRAM DAILY;
     Route: 065

REACTIONS (4)
  - Hyperkalaemia [Recovering/Resolving]
  - Gait disturbance [Unknown]
  - Toxicity to various agents [Recovering/Resolving]
  - Asthenia [Unknown]

NARRATIVE: CASE EVENT DATE: 20180227
